FAERS Safety Report 7231853-X (Version None)
Quarter: 2011Q1

REPORT INFORMATION
  Report Type: 
  Country: None (occurrence: None)
  Receive Date: 20110118
  Receipt Date: 20110110
  Transmission Date: 20110831
  Serious: Yes (Other)
  Sender: FDA-Public Use
  Company Number: SE-PFIZER INC-2011004528

PATIENT
  Sex: Male
  Weight: 74 kg

DRUGS (4)
  1. AMLODIPINE [Concomitant]
  2. CORDARONE [Suspect]
     Indication: SURGERY
     Dosage: 100 MG, 1X/DAY
     Route: 048
     Dates: start: 20100501, end: 20101101
  3. CORDARONE [Suspect]
     Indication: ATRIAL FIBRILLATION
     Dosage: 200 MG, 1X/DAY
     Route: 048
     Dates: start: 20091201, end: 20100501
  4. BISOPROLOL [Concomitant]

REACTIONS (4)
  - URINARY INCONTINENCE [None]
  - URINARY TRACT DISORDER [None]
  - MICTURITION URGENCY [None]
  - HYPERTHYROIDISM [None]
